FAERS Safety Report 8075609-7 (Version None)
Quarter: 2012Q1

REPORT INFORMATION
  Report Type: 
  Country: None (occurrence: None)
  Receive Date: 20120127
  Receipt Date: 20120110
  Transmission Date: 20120608
  Serious: Yes (Other)
  Sender: FDA-Public Use
  Company Number: CA-JNJFOC-20120110811

PATIENT
  Sex: Female
  Weight: 54.5 kg

DRUGS (6)
  1. REMICADE [Suspect]
     Dates: start: 20111214
  2. CIPROFLOXACIN [Concomitant]
  3. REMICADE [Suspect]
  4. IMURAN [Concomitant]
  5. REMICADE [Suspect]
     Dates: start: 20090926
  6. REMICADE [Suspect]
     Indication: CROHN'S DISEASE

REACTIONS (2)
  - FISTULA [None]
  - ARTHRALGIA [None]
